FAERS Safety Report 18023993 (Version 1)
Quarter: 2020Q3

REPORT INFORMATION
  Report Type: Report from Study
  Country: US (occurrence: US)
  Receive Date: 20200715
  Receipt Date: 20200715
  Transmission Date: 20201103
  Serious: Yes (Other)
  Sender: FDA-Public Use
  Company Number: US-SUN PHARMACEUTICAL INDUSTRIES LTD-2020R1-253123

PATIENT
  Age: 15 Year
  Sex: Male

DRUGS (1)
  1. ABSORICA [Suspect]
     Active Substance: ISOTRETINOIN
     Indication: ACNE
     Dosage: 40 MILLIGRAM, BID
     Route: 048
     Dates: start: 20190815, end: 20191107

REACTIONS (2)
  - Mood swings [Not Recovered/Not Resolved]
  - Violence-related symptom [Unknown]

NARRATIVE: CASE EVENT DATE: 201909
